FAERS Safety Report 9586180 (Version 1)
Quarter: 2013Q4

REPORT INFORMATION
  Report Type: Spontaneous
  Country: US (occurrence: None)
  Receive Date: 20131002
  Receipt Date: 20131002
  Transmission Date: 20140711
  Serious: Yes (Disabling)
  Sender: FDA-Public Use
  Company Number: None

PATIENT
  Age: 37 Year
  Sex: Female
  Weight: 52.16 kg

DRUGS (2)
  1. BACTRIM DS [Suspect]
     Indication: ACNE CYSTIC
     Dosage: 1 PILL
     Route: 048
     Dates: start: 20130824, end: 20131001
  2. BACTRIM DS [Suspect]
     Indication: SKIN INFECTION
     Dosage: 1 PILL
     Route: 048
     Dates: start: 20130824, end: 20131001

REACTIONS (4)
  - Tinnitus [None]
  - Deafness [None]
  - Dizziness [None]
  - Abdominal pain [None]
